FAERS Safety Report 7701484-3 (Version None)
Quarter: 2011Q3

REPORT INFORMATION
  Report Type: 
  Country: None (occurrence: None)
  Receive Date: 20110817
  Receipt Date: 20110801
  Transmission Date: 20111222
  Serious: Yes (Hospitalization, Other)
  Sender: FDA-Public Use
  Company Number: 2011MA008946

PATIENT
  Age: 32 Year
  Sex: Male

DRUGS (4)
  1. PHENOBARBITAL TAB [Suspect]
     Indication: CONVULSION
     Dosage: S
  2. TRIHEXYPHENIDYL HCL [Suspect]
     Indication: EXTRAPYRAMIDAL DISORDER
  3. HALOPERIDOL [Suspect]
     Indication: PSYCHOTIC DISORDER
  4. LEVOMEPROMAZINE (LEVOMEPROMAZINE) [Concomitant]
     Indication: PSYCHOTIC DISORDER

REACTIONS (19)
  - DYSARTHRIA [None]
  - CEREBRAL CALCIFICATION [None]
  - CONDITION AGGRAVATED [None]
  - HYPOCALCAEMIA [None]
  - HYPERPHOSPHATASAEMIA [None]
  - EXTRAPYRAMIDAL DISORDER [None]
  - ALCOHOL USE [None]
  - PSEUDOHYPOPARATHYROIDISM [None]
  - PARANOIA [None]
  - CONVULSION [None]
  - TREMOR [None]
  - SCHIZOPHRENIA [None]
  - ANXIETY [None]
  - PERSECUTORY DELUSION [None]
  - PSYCHOTIC DISORDER [None]
  - HYPERTONIA [None]
  - FAHR'S DISEASE [None]
  - JUDGEMENT IMPAIRED [None]
  - DRUG INTOLERANCE [None]
